FAERS Safety Report 18256624 (Version 1)
Quarter: 2020Q3

REPORT INFORMATION
  Report Type: Spontaneous
  Country: US (occurrence: US)
  Receive Date: 20200911
  Receipt Date: 20200911
  Transmission Date: 20201103
  Serious: Yes (Death, Life-Threatening, Hospitalization, Other)
  Sender: FDA-Public Use
  Company Number: US-HIKMA PHARMACEUTICALS USA INC.-US-H14001-20-04197

PATIENT
  Age: 56 Year
  Sex: Female
  Weight: 33 kg

DRUGS (1)
  1. HEPARIN [Suspect]
     Active Substance: HEPARIN SODIUM
     Indication: THROMBOSIS PROPHYLAXIS
     Route: 058

REACTIONS (11)
  - Hypotension [Not Recovered/Not Resolved]
  - Cardiac arrest [Recovered/Resolved]
  - Septic shock [Fatal]
  - Haemoglobin decreased [Fatal]
  - Pneumonia aspiration [Unknown]
  - Leukocytosis [Not Recovered/Not Resolved]
  - Escherichia bacteraemia [Not Recovered/Not Resolved]
  - Abdominal wall haematoma [Not Recovered/Not Resolved]
  - Subarachnoid haemorrhage [Not Recovered/Not Resolved]
  - Acute kidney injury [Unknown]
  - Colitis ischaemic [Unknown]
